FAERS Safety Report 17753049 (Version 10)
Quarter: 2022Q1

REPORT INFORMATION
  Report Type: Report from Study
  Country: AR (occurrence: AR)
  Receive Date: 20200506
  Receipt Date: 20220222
  Transmission Date: 20220423
  Serious: Yes (Hospitalization, Other)
  Sender: FDA-Public Use
  Company Number: NVSC2020AR111098

PATIENT
  Age: 66 Year
  Sex: Female

DRUGS (2)
  1. COSENTYX [Suspect]
     Active Substance: SECUKINUMAB
     Indication: Psoriasis
     Dosage: 300 MG, QMO
     Route: 058
     Dates: start: 20191209, end: 20200601
  2. COSENTYX [Suspect]
     Active Substance: SECUKINUMAB
     Indication: Psoriatic arthropathy
     Dosage: 300 MG, QMO
     Route: 058
     Dates: end: 20200815

REACTIONS (22)
  - Localised infection [Recovering/Resolving]
  - Thrombosis [Recovering/Resolving]
  - Pain [Recovering/Resolving]
  - Depression [Unknown]
  - Psoriasis [Not Recovered/Not Resolved]
  - Pruritus [Unknown]
  - Haemorrhage [Unknown]
  - Scratch [Unknown]
  - Psoriatic arthropathy [Unknown]
  - Arthritis [Unknown]
  - Arthropathy [Not Recovered/Not Resolved]
  - Infarction [Unknown]
  - Muscle spasms [Unknown]
  - Gait disturbance [Unknown]
  - Arthralgia [Unknown]
  - Arterial occlusive disease [Unknown]
  - Hand deformity [Unknown]
  - Mobility decreased [Unknown]
  - Insomnia [Unknown]
  - Vascular resistance systemic decreased [Unknown]
  - Somatic symptom disorder [Unknown]
  - Asthenia [Unknown]

NARRATIVE: CASE EVENT DATE: 20200801
